FAERS Safety Report 12812785 (Version 3)
Quarter: 2016Q4

REPORT INFORMATION
  Report Type: Spontaneous
  Country: US (occurrence: US)
  Receive Date: 20161005
  Receipt Date: 20161107
  Transmission Date: 20170207
  Serious: Yes (Death, Hospitalization, Other)
  Sender: FDA-Public Use
  Company Number: US-009507513-1610USA001281

PATIENT
  Sex: Female
  Weight: 48 kg

DRUGS (2)
  1. NOXAFIL [Suspect]
     Active Substance: POSACONAZOLE
     Indication: FUNGAL INFECTION
     Dosage: 300 MG, QD
     Route: 048
     Dates: start: 20160221, end: 20160929
  2. WARFARIN [Concomitant]
     Active Substance: WARFARIN
     Indication: GRAFT THROMBOSIS
     Dosage: UNK

REACTIONS (5)
  - Renal failure [Fatal]
  - Expired product administered [Unknown]
  - Fluid overload [Fatal]
  - Dyspnoea [Unknown]
  - End stage renal disease [Fatal]

NARRATIVE: CASE EVENT DATE: 2016
